FAERS Safety Report 22090384 (Version 3)
Quarter: 2025Q4

REPORT INFORMATION
  Report Type: Spontaneous
  Country: EU (occurrence: EU)
  Receive Date: 20230313
  Receipt Date: 20251107
  Transmission Date: 20260119
  Serious: Yes (Other)
  Sender: ORGANON
  Company Number: EU-ORGANON-O2303ESP000911

PATIENT
  Age: 26 Year
  Sex: Female
  Weight: 50 kg

DRUGS (2)
  1. ETONOGESTREL [Suspect]
     Active Substance: ETONOGESTREL
     Indication: Contraception
     Dosage: 1 IMPLANT FOR 3 YEARS, LEFT UPPER ARM
     Dates: start: 20230202, end: 20230303
  2. ETONOGESTREL [Concomitant]
     Active Substance: ETONOGESTREL
     Dosage: 1 IMPLANT
     Dates: start: 20200203, end: 20230202

REACTIONS (4)
  - Device expulsion [Recovered/Resolved]
  - Limb discomfort [Unknown]
  - Implant site erythema [Unknown]
  - Device implantation error [Recovered/Resolved]
